FAERS Safety Report 24971205 (Version 1)
Quarter: 2025Q1

REPORT INFORMATION
  Report Type: Spontaneous
  Country: GB (occurrence: GB)
  Receive Date: 20250214
  Receipt Date: 20250214
  Transmission Date: 20250409
  Serious: Yes (Other)
  Sender: MERCK SHARP & DOHME LLC
  Company Number: None

PATIENT
  Age: 79 Year
  Sex: Male
  Weight: 70 kg

DRUGS (12)
  1. ERTAPENEM [Suspect]
     Active Substance: ERTAPENEM
     Indication: Infection
     Dates: start: 20250127, end: 20250208
  2. SOLIFENACIN [Concomitant]
     Active Substance: SOLIFENACIN
  3. FOLIC ACID [Concomitant]
     Active Substance: FOLIC ACID
  4. SERTRALINE [Concomitant]
     Active Substance: SERTRALINE HYDROCHLORIDE
  5. TINZAPARIN [Concomitant]
     Active Substance: TINZAPARIN
  6. DOCUSATE [Concomitant]
     Active Substance: DOCUSATE
  7. CYANOCOBALAMIN [Concomitant]
     Active Substance: CYANOCOBALAMIN
  8. SENNA [Concomitant]
     Active Substance: SENNOSIDES
  9. HALOPERIDOL [Concomitant]
     Active Substance: HALOPERIDOL
  10. SIMVASTATIN [Concomitant]
     Active Substance: SIMVASTATIN
  11. OMEPRAZOLE [Concomitant]
     Active Substance: OMEPRAZOLE
  12. ACETAMINOPHEN [Concomitant]
     Active Substance: ACETAMINOPHEN

REACTIONS (1)
  - Neurotoxicity [Recovering/Resolving]

NARRATIVE: CASE EVENT DATE: 20250201
